FAERS Safety Report 6241824-8 (Version None)
Quarter: 2009Q2

REPORT INFORMATION
  Report Type: 
  Country: None (occurrence: None)
  Receive Date: 20090623
  Receipt Date: 20090616
  Transmission Date: 20091009
  Serious: Yes (Hospitalization)
  Sender: FDA-Public Use
  Company Number: FR-PFIZER INC-2009227336

PATIENT
  Age: 65 Year

DRUGS (5)
  1. DEPO-MEDROL [Suspect]
     Indication: BURKITT'S LYMPHOMA
     Dosage: 40 MG, ALTERNATE DAY
     Route: 037
     Dates: start: 20090508, end: 20090510
  2. METHOTREXATE [Suspect]
     Indication: BURKITT'S LYMPHOMA
     Dosage: 15 MG, ALTERNATE DAY
     Route: 037
     Dates: start: 20090508, end: 20090510
  3. SOLU-MEDROL [Concomitant]
     Indication: BURKITT'S LYMPHOMA
     Dosage: UNK
     Dates: start: 20090509
  4. ENDOXAN [Concomitant]
     Indication: BURKITT'S LYMPHOMA
     Dosage: UNK
     Dates: start: 20090509
  5. VINCRISTINE [Concomitant]
     Indication: BURKITT'S LYMPHOMA
     Dosage: UNK
     Dates: start: 20090509

REACTIONS (1)
  - PLEOCYTOSIS [None]
